FAERS Safety Report 15180846 (Version 1)
Quarter: 2018Q3

REPORT INFORMATION
  Report Type: Report from Study
  Country: GB (occurrence: GB)
  Receive Date: 20180723
  Receipt Date: 20180723
  Transmission Date: 20181010
  Serious: Yes (Other)
  Sender: FDA-Public Use
  Company Number: GB-AUROBINDO-AUR-APL-2018-036892

PATIENT
  Age: 67 Year
  Sex: Male

DRUGS (2)
  1. VORICONAZOLE. [Suspect]
     Active Substance: VORICONAZOLE
     Indication: BRONCHOPULMONARY ASPERGILLOSIS
     Dosage: 300 MILLIGRAM, DAILY, (150 MG, 2X/DAY (300 DOSE PER DAY))
     Route: 065
  2. VORICONAZOLE. [Suspect]
     Active Substance: VORICONAZOLE
     Dosage: 400 MILLIGRAM, DAILY, (200 MG, 2X/DAY (400 DAILY DOSE))
     Route: 065

REACTIONS (1)
  - Neuropathy peripheral [Unknown]
